FAERS Safety Report 11532440 (Version 1)
Quarter: 2015Q3

REPORT INFORMATION
  Report Type: Spontaneous
  Country: BR (occurrence: BR)
  Receive Date: 20150921
  Receipt Date: 20150921
  Transmission Date: 20151125
  Serious: Yes (Death)
  Sender: FDA-Public Use
  Company Number: BR-ASTRAZENECA-2015SE89347

PATIENT
  Age: 33099 Day
  Sex: Female

DRUGS (1)
  1. VANNAIR [Suspect]
     Active Substance: BUDESONIDE\FORMOTEROL FUMARATE DIHYDRATE
     Indication: PRODUCTIVE COUGH
     Dosage: 160/4.5 MCG, UNKNOWN FREQUENCY
     Route: 055

REACTIONS (2)
  - Cardiac arrest [Fatal]
  - Bradycardia [Fatal]

NARRATIVE: CASE EVENT DATE: 20150912
